FAERS Safety Report 4680603-X (Version None)
Quarter: 2005Q2

REPORT INFORMATION
  Report Type: 
  Country: None (occurrence: None)
  Receive Date: 20050531
  Receipt Date: 20050318
  Transmission Date: 20051028
  Serious: Yes (Other)
  Sender: FDA-Public Use
  Company Number: 2005047180

PATIENT
  Age: 50 Year
  Sex: Female

DRUGS (6)
  1. SOLU-MEDROL [Suspect]
     Indication: MULTIPLE SCLEROSIS RELAPSE
     Dosage: UNKNOWN, INTRAVENOUS
     Route: 042
     Dates: start: 20050106, end: 20050106
  2. BETASERON [Suspect]
     Indication: RELAPSING-REMITTING MULTIPLE SCLEROSIS
     Dosage: 8 MIU (250 MCG, EVERY 2 DAYS), SUBCUTANEOUS
     Route: 058
     Dates: start: 20020301
  3. LISINOPRIL [Concomitant]
  4. OMEPRAZOLE [Concomitant]
  5. ESCITALOPRAM OXALATE [Concomitant]
  6. ALPRAZOLAM [Concomitant]

REACTIONS (3)
  - CONDITION AGGRAVATED [None]
  - DIABETES MELLITUS [None]
  - INJECTION SITE ERYTHEMA [None]
